FAERS Safety Report 4289509-1 (Version None)
Quarter: 2004Q1

REPORT INFORMATION
  Report Type: 
  Country: None (occurrence: None)
  Receive Date: 20040113
  Receipt Date: 20030129
  Transmission Date: 20041129
  Serious: Yes (Other)
  Sender: FDA-Public Use
  Company Number: 2003003970

PATIENT
  Age: 62 Year
  Sex: Male

DRUGS (5)
  1. DIFLUCAN [Suspect]
     Indication: ILL-DEFINED DISORDER
     Dosage: ORAL
     Route: 048
  2. ERYTHROPOIETIN (ERYTHROPOIETIN) [Suspect]
     Indication: ANAEMIA
     Dosage: SUBCUTANEOUS
     Route: 058
  3. BACTRIM [Concomitant]
  4. OXYCOCET (PARACETAMOL, OXYCODONE HYDROCHLORIDE) [Concomitant]
  5. OCTREOTIDE ACETATE (OCTREOTIDE ACETATE) [Concomitant]

REACTIONS (1)
  - ALANINE AMINOTRANSFERASE INCREASED [None]
